FAERS Safety Report 13300921 (Version 1)
Quarter: 2017Q1

REPORT INFORMATION
  Report Type: Spontaneous
  Country: CH (occurrence: CH)
  Receive Date: 20170307
  Receipt Date: 20170307
  Transmission Date: 20170428
  Serious: Yes (Hospitalization, Other)
  Sender: FDA-Public Use
  Company Number: PHHY2017CH027847

PATIENT
  Age: 76 Year
  Sex: Female
  Weight: 66 kg

DRUGS (8)
  1. LOPERAMID [Concomitant]
     Active Substance: LOPERAMIDE
     Indication: DIARRHOEA
     Dosage: BEI DIARRHOE IN RES. MAX. 10 PRO TAG
     Route: 048
     Dates: start: 20160627
  2. BILOL COMP [Suspect]
     Active Substance: BISOPROLOL FUMARATE\HYDROCHLOROTHIAZIDE
     Indication: HYPERTENSION
     Dosage: 10.25 MG, UNK
     Route: 048
     Dates: start: 20110119, end: 20160705
  3. VI-DE 3 [Concomitant]
     Active Substance: CHOLECALCIFEROL
     Indication: OSTEOPENIA
     Dosage: 10 GTT, QD
     Route: 048
     Dates: start: 20110520
  4. ASPIRIN CARDIO [Concomitant]
     Active Substance: ASPIRIN
     Indication: PERIPHERAL VASCULAR DISORDER
     Dosage: 100 MG, QD
     Route: 048
     Dates: start: 20080820
  5. NOVALGIN [Concomitant]
     Active Substance: METAMIZOLE SODIUM
     Indication: PAIN
     Dosage: MAX. 3X1 PRO TAG IN RES.
     Route: 048
     Dates: start: 20160627
  6. ESOMEP [Suspect]
     Active Substance: ESOMEPRAZOLE
     Indication: GASTROOESOPHAGEAL REFLUX DISEASE
     Dosage: 40 MG, QD
     Route: 048
     Dates: start: 20090209, end: 20160927
  7. ATORVASTATIN MEPHA [Concomitant]
     Indication: HYPERCHOLESTEROLAEMIA
     Route: 048
     Dates: start: 20031112
  8. PERINDOPRIL-MEPHA N [Concomitant]
     Indication: HYPERTENSION
     Dosage: 5 MG, UNK
     Route: 048
     Dates: start: 20160125

REACTIONS (3)
  - Hypocalcaemia [Recovering/Resolving]
  - Tetany [Recovering/Resolving]
  - Hypomagnesaemia [Recovering/Resolving]

NARRATIVE: CASE EVENT DATE: 20160705
